FAERS Safety Report 5922962-3 (Version None)
Quarter: 2008Q4

REPORT INFORMATION
  Report Type: 
  Country: None (occurrence: None)
  Receive Date: 20081018
  Receipt Date: 20081007
  Transmission Date: 20090506
  Serious: Yes (Death, Congenital Anomaly, Other)
  Sender: FDA-Public Use
  Company Number: US-PFIZER INC-001-0073-M0000070

PATIENT
  Sex: Male
  Weight: 2.4 kg

DRUGS (4)
  1. DILANTIN [Suspect]
     Indication: EPILEPSY
     Dosage: DAILY DOSE:200MG
     Route: 064
  2. DIAMOX [Suspect]
     Indication: EPILEPSY
     Route: 064
  3. VITAMIN TAB [Concomitant]
  4. FOLIC ACID [Concomitant]

REACTIONS (5)
  - ASCITES [None]
  - CONGENITAL ANOMALY [None]
  - CONGENITAL CYSTIC LUNG [None]
  - STILLBIRTH [None]
  - UNEVALUABLE EVENT [None]
